FAERS Safety Report 21440517 (Version 1)
Quarter: 2022Q4

REPORT INFORMATION
  Report Type: Spontaneous
  Country: US (occurrence: None)
  Receive Date: 20221010
  Receipt Date: 20221010
  Transmission Date: 20230113
  Serious: Yes (Death)
  Sender: FDA-Public Use
  Company Number: None

PATIENT
  Age: 68 Year
  Sex: Male

DRUGS (1)
  1. REVLIMID [Suspect]
     Active Substance: LENALIDOMIDE
     Indication: Plasma cell myeloma
     Dosage: FREQUENCY : DAILY;?
     Route: 048
     Dates: start: 20200409, end: 20220917

REACTIONS (6)
  - Fatigue [None]
  - Dyspnoea exertional [None]
  - Muscular weakness [None]
  - Sepsis [None]
  - Acute kidney injury [None]
  - Respiratory distress [None]

NARRATIVE: CASE EVENT DATE: 20220917
